FAERS Safety Report 11951173 (Version 1)
Quarter: 2016Q1

REPORT INFORMATION
  Report Type: Spontaneous
  Country: JP (occurrence: JP)
  Receive Date: 20160126
  Receipt Date: 20160126
  Transmission Date: 20160526
  Serious: Yes (Other)
  Sender: FDA-Public Use
  Company Number: JP-GLAXOSMITHKLINE-JP2015JPN066781

PATIENT
  Age: 65 Year
  Sex: Female

DRUGS (1)
  1. VIROLEX [Suspect]
     Active Substance: ACYCLOVIR
     Dosage: 800 MG, QID
     Route: 048

REACTIONS (11)
  - Eye discharge [Recovering/Resolving]
  - Malaise [Recovering/Resolving]
  - Enanthema [Recovering/Resolving]
  - Lip erosion [Recovering/Resolving]
  - Conjunctival hyperaemia [Recovering/Resolving]
  - Erythema multiforme [Recovering/Resolving]
  - Oral mucosa erosion [Recovering/Resolving]
  - Drug eruption [Recovering/Resolving]
  - Purpura [Recovering/Resolving]
  - Lip swelling [Recovering/Resolving]
  - Pyrexia [Recovering/Resolving]
